FAERS Safety Report 12336430 (Version 1)
Quarter: 2016Q2

REPORT INFORMATION
  Report Type: Spontaneous
  Country: US (occurrence: None)
  Receive Date: 20160504
  Receipt Date: 20160504
  Transmission Date: 20160815
  Serious: Yes (Disabling)
  Sender: FDA-Public Use
  Company Number: None

PATIENT
  Age: 35 Year
  Sex: Female
  Weight: 54.43 kg

DRUGS (5)
  1. CLOBETASOL PROPINATE OINTMENT [Suspect]
     Active Substance: CLOBETASOL PROPIONATE
     Indication: ECZEMA
     Route: 061
     Dates: start: 20090501, end: 20150601
  2. VENTOLIN [Concomitant]
     Active Substance: ALBUTEROL SULFATE
  3. HYDROXYZINE [Concomitant]
     Active Substance: HYDROXYZINE\HYDROXYZINE HYDROCHLORIDE
  4. ZYRTEC [Concomitant]
     Active Substance: CETIRIZINE HYDROCHLORIDE
  5. PRENATAL VITAMINS [Concomitant]
     Active Substance: VITAMINS

REACTIONS (16)
  - Peripheral swelling [None]
  - Rash generalised [None]
  - Therapy cessation [None]
  - Eczema [None]
  - Palpitations [None]
  - Infection [None]
  - Rash erythematous [None]
  - Pregnancy [None]
  - Temperature regulation disorder [None]
  - Insomnia [None]
  - Burning sensation [None]
  - Drug dependence [None]
  - Eye swelling [None]
  - Activities of daily living impaired [None]
  - Exposure during pregnancy [None]
  - Rebound effect [None]

NARRATIVE: CASE EVENT DATE: 20160309
